FAERS Safety Report 4901651-8 (Version None)
Quarter: 2006Q1

REPORT INFORMATION
  Report Type: 
  Country: None (occurrence: None)
  Receive Date: 20060206
  Receipt Date: 20050829
  Transmission Date: 20060701
  Serious: Yes (Hospitalization)
  Sender: FDA-Public Use
  Company Number: US-BRISTOL-MYERS SQUIBB COMPANY-13092689

PATIENT
  Age: 58 Year
  Sex: Female
  Weight: 93 kg

DRUGS (4)
  1. TAXOL [Suspect]
     Indication: BREAST CANCER
     Route: 042
     Dates: start: 20050824, end: 20050824
  2. DEXAMETHASONE TAB [Concomitant]
  3. HYDROCHLOROTHIAZIDE [Concomitant]
  4. COUMADIN [Concomitant]
     Dates: start: 20050501

REACTIONS (1)
  - ATRIAL FIBRILLATION [None]
